FAERS Safety Report 16266665 (Version 1)
Quarter: 2019Q2

REPORT INFORMATION
  Report Type: Spontaneous
  Country: CA (occurrence: CA)
  Receive Date: 20190502
  Receipt Date: 20190502
  Transmission Date: 20190711
  Serious: Yes (Other)
  Sender: FDA-Public Use
  Company Number: CA-PFIZER INC-2019183941

PATIENT
  Age: 47 Year
  Sex: Female

DRUGS (2)
  1. TOVIAZ [Suspect]
     Active Substance: FESOTERODINE FUMARATE
     Indication: HYPERTONIC BLADDER
     Dosage: 8 MG, 1X/DAY
     Route: 048
  2. MYRBETRIQ [Concomitant]
     Active Substance: MIRABEGRON
     Dosage: UNK

REACTIONS (1)
  - Corneal disorder [Recovered/Resolved]
